FAERS Safety Report 5163684-9 (Version None)
Quarter: 2006Q4

REPORT INFORMATION
  Report Type: 
  Country: None (occurrence: None)
  Receive Date: 20061204
  Receipt Date: 20010115
  Transmission Date: 20070319
  Serious: Yes (Hospitalization)
  Sender: FDA-Public Use
  Company Number: FR-GLAXOSMITHKLINE-B0096723A

PATIENT
  Age: 1 Month
  Sex: Female

DRUGS (11)
  1. EPIVIR [Suspect]
     Indication: ANTIVIRAL PROPHYLAXIS
     Route: 048
     Dates: start: 19980516
  2. RETROVIR [Suspect]
     Indication: ANTIVIRAL PROPHYLAXIS
     Route: 048
     Dates: start: 19980516
  3. ZIDOVUDINE [Suspect]
     Indication: HIV INFECTION
     Route: 048
  4. LAMIVUDINE [Suspect]
     Indication: HIV INFECTION
     Route: 048
  5. POLYGYNAX [Concomitant]
  6. SPASFON [Concomitant]
  7. UTROGESTAN [Concomitant]
  8. FLAGYL [Concomitant]
  9. SALBUTAMOL [Concomitant]
  10. CLAMOXYL [Concomitant]
  11. DEXAMETHASONE [Concomitant]

REACTIONS (11)
  - ANAEMIA [None]
  - ASPARTATE AMINOTRANSFERASE INCREASED [None]
  - BLOOD LACTIC ACID INCREASED [None]
  - BLOOD PYRUVIC ACID INCREASED [None]
  - CACHEXIA [None]
  - CONVULSION [None]
  - HEMIPARESIS [None]
  - HYPOTONIA [None]
  - LACTIC ACIDOSIS [None]
  - NEUTROPENIA [None]
  - PSYCHOMOTOR RETARDATION [None]
